FAERS Safety Report 13264358 (Version 1)
Quarter: 2017Q1

REPORT INFORMATION
  Report Type: Spontaneous
  Country: US (occurrence: US)
  Receive Date: 20170222
  Receipt Date: 20170222
  Transmission Date: 20170428
  Serious: Yes (Hospitalization)
  Sender: FDA-Public Use
  Company Number: None

PATIENT
  Age: 72 Year
  Sex: Male
  Weight: 94.3 kg

DRUGS (11)
  1. CARVODILOL [Concomitant]
  2. OMEPRAZOLE. [Concomitant]
     Active Substance: OMEPRAZOLE
  3. FUROSEMIDE. [Concomitant]
     Active Substance: FUROSEMIDE
  4. LISPRO INSULIN [Concomitant]
     Active Substance: INSULIN LISPRO
  5. ENZALUTAMIDE 40 MG (160 PO QD) [Suspect]
     Active Substance: ENZALUTAMIDE
     Indication: PROSTATE CANCER
     Route: 048
     Dates: start: 20160727
  6. AMLODIPINE [Concomitant]
     Active Substance: AMLODIPINE BESYLATE
  7. ALLOPURINAL [Concomitant]
  8. AMIODARONE [Concomitant]
     Active Substance: AMIODARONE
  9. LANTUS [Concomitant]
     Active Substance: INSULIN GLARGINE
  10. PANCREATIC ENZYMES [Concomitant]
     Active Substance: UNSPECIFIED INGREDIENT
  11. IRON AND FOLIC ACIDE SUPPLEMENTS [Concomitant]

REACTIONS (3)
  - Syncope [None]
  - Renal failure [None]
  - Cardiac failure congestive [None]

NARRATIVE: CASE EVENT DATE: 20170215
